FAERS Safety Report 13519221 (Version 1)
Quarter: 2017Q2

REPORT INFORMATION
  Report Type: Spontaneous
  Country: FR (occurrence: FR)
  Receive Date: 20170505
  Receipt Date: 20170505
  Transmission Date: 20170830
  Serious: Yes (Other)
  Sender: FDA-Public Use
  Company Number: FR-BRISTOL-MYERS SQUIBB COMPANY-BMS-2017-035614

PATIENT
  Age: 29 Year
  Sex: Male

DRUGS (4)
  1. ALKERAN [Suspect]
     Active Substance: MELPHALAN
     Indication: T-CELL LYMPHOMA STAGE IV
     Dosage: 140 MG/M2, UNK
     Route: 042
     Dates: start: 20161103
  2. ETOPOPHOS [Suspect]
     Active Substance: ETOPOSIDE PHOSPHATE
     Indication: T-CELL LYMPHOMA STAGE IV
     Dosage: 200 MG/M2, UNK
     Route: 042
     Dates: start: 20161030, end: 20161102
  3. CYTARABINE KABI [Suspect]
     Active Substance: CYTARABINE
     Indication: T-CELL LYMPHOMA STAGE IV
     Dosage: 400 MG/M2, UNK
     Route: 042
     Dates: start: 20161030, end: 20161102
  4. BICNU [Suspect]
     Active Substance: CARMUSTINE
     Indication: T-CELL LYMPHOMA STAGE IV
     Dosage: 300 MG/M2, UNK
     Route: 042
     Dates: start: 20161029

REACTIONS (2)
  - Pericarditis [Recovered/Resolved]
  - Transplant [Unknown]

NARRATIVE: CASE EVENT DATE: 20161105
